FAERS Safety Report 9884530 (Version 1)
Quarter: 2014Q1

REPORT INFORMATION
  Report Type: Spontaneous
  Country: US (occurrence: US)
  Receive Date: 20140210
  Receipt Date: 20140210
  Transmission Date: 20141002
  Serious: No
  Sender: FDA-Public Use
  Company Number: US-ALLERGAN-1319301US

PATIENT
  Age: 69 Year
  Sex: Male

DRUGS (1)
  1. BOTOX COSMETIC [Suspect]
     Indication: LARYNGOSPASM
     Dosage: 10 UNITS, SINGLE
     Route: 030
     Dates: start: 20131002, end: 20131002

REACTIONS (2)
  - Off label use [Unknown]
  - Drug ineffective [Unknown]
